FAERS Safety Report 4708511-6 (Version None)
Quarter: 2005Q3

REPORT INFORMATION
  Report Type: 
  Country: None (occurrence: None)
  Receive Date: 20050707
  Receipt Date: 20040817
  Transmission Date: 20060218
  Serious: Yes (Other)
  Sender: FDA-Public Use
  Company Number: US-GLAXOSMITHKLINE-A0522442A

PATIENT
  Age: 78 Year
  Sex: Female

DRUGS (1)
  1. THORAZINE [Suspect]
     Indication: DEPRESSION
     Dosage: 75MG AT NIGHT
     Route: 048
     Dates: start: 19750101, end: 20000101

REACTIONS (8)
  - BLOOD PRESSURE INCREASED [None]
  - CATARACT [None]
  - DYSGRAPHIA [None]
  - GLAUCOMA [None]
  - ILL-DEFINED DISORDER [None]
  - READING DISORDER [None]
  - SPEECH DISORDER [None]
  - TREMOR [None]
